FAERS Safety Report 23388660 (Version 1)
Quarter: 2024Q1

REPORT INFORMATION
  Report Type: Spontaneous
  Country: US (occurrence: None)
  Receive Date: 20240110
  Receipt Date: 20240110
  Transmission Date: 20240410
  Serious: Yes (Death)
  Sender: FDA-Public Use
  Company Number: None

PATIENT
  Sex: Male

DRUGS (7)
  1. PAZOPANIB [Suspect]
     Active Substance: PAZOPANIB
     Indication: Renal cancer
     Dosage: FREQUENCY : DAILY;?TAKE 4 TABLETS BY MOUTH EVERY DAY ONE HOUR PRIOR TO A MEAL OR 2 HOURS AFTER A MEA
     Route: 048
     Dates: start: 20231220, end: 202401
  2. EVEROLIMUS [Concomitant]
     Active Substance: EVEROLIMUS
  3. ACETAMINOPHEN\HYDROCODONE [Concomitant]
     Active Substance: ACETAMINOPHEN\HYDROCODONE
  4. KEYTRUDA [Concomitant]
     Active Substance: PEMBROLIZUMAB
  5. MORPHINE SUL TAB ER [Concomitant]
  6. ONDANSETRON [Concomitant]
     Active Substance: ONDANSETRON
  7. SUNITINIB [Concomitant]
     Active Substance: SUNITINIB

REACTIONS (1)
  - Death [None]
